FAERS Safety Report 14925100 (Version 2)
Quarter: 2018Q2

REPORT INFORMATION
  Report Type: Spontaneous
  Country: PL (occurrence: PL)
  Receive Date: 20180522
  Receipt Date: 20180611
  Transmission Date: 20180711
  Serious: Yes (Other)
  Sender: FDA-Public Use
  Company Number: PL-ARBOR PHARMACEUTICALS, LLC-PL-2018ARB000576

PATIENT
  Sex: Male

DRUGS (1)
  1. TRIPTODUR [Suspect]
     Active Substance: TRIPTORELIN
     Indication: PROSTATE CANCER
     Dosage: 11.25 MG, 3 M
     Dates: start: 2016

REACTIONS (3)
  - Arthralgia [Not Recovered/Not Resolved]
  - Joint stiffness [Not Recovered/Not Resolved]
  - Joint swelling [Not Recovered/Not Resolved]
